FAERS Safety Report 19502866 (Version 2)
Quarter: 2021Q3

REPORT INFORMATION
  Report Type: Report from Study
  Country: US (occurrence: US)
  Receive Date: 20210707
  Receipt Date: 20210712
  Transmission Date: 20211014
  Serious: No
  Sender: FDA-Public Use
  Company Number: US-AMGEN-USASP2021099924

PATIENT
  Age: 59 Year
  Sex: Female

DRUGS (18)
  1. ASPIRINE [Concomitant]
     Active Substance: ASPIRIN
  2. COENZYME Q10 [Concomitant]
     Active Substance: DIETARY SUPPLEMENT\UBIDECARENONE
  3. ADDERALL [Concomitant]
     Active Substance: AMPHETAMINE ASPARTATE\AMPHETAMINE SULFATE\DEXTROAMPHETAMINE SACCHARATE\DEXTROAMPHETAMINE SULFATE
  4. POTASSIUM [Concomitant]
     Active Substance: POTASSIUM
  5. TRAZODONE [Concomitant]
     Active Substance: TRAZODONE HYDROCHLORIDE
  6. ZETIA [Concomitant]
     Active Substance: EZETIMIBE
  7. LASIX [Concomitant]
     Active Substance: FUROSEMIDE
  8. PROZAC [Concomitant]
     Active Substance: FLUOXETINE HYDROCHLORIDE
  9. PRAVASTATIN. [Concomitant]
     Active Substance: PRAVASTATIN
  10. LAMICTAL [Concomitant]
     Active Substance: LAMOTRIGINE
  11. VASCEPA [Concomitant]
     Active Substance: ICOSAPENT ETHYL
  12. RAMIPRIL. [Concomitant]
     Active Substance: RAMIPRIL
  13. METFORMIN [Concomitant]
     Active Substance: METFORMIN HYDROCHLORIDE
  14. VITAMIN D [COLECALCIFEROL] [Concomitant]
     Active Substance: CHOLECALCIFEROL
  15. INSULIN [Concomitant]
     Active Substance: INSULIN NOS
  16. REPATHA [Suspect]
     Active Substance: EVOLOCUMAB
     Indication: BLOOD CHOLESTEROL ABNORMAL
     Dosage: 140 MILLIGRAM PER MILLILITRE, Q2WK
     Route: 030
     Dates: start: 2021
  17. ZYRTEC [Concomitant]
     Active Substance: CETIRIZINE HYDROCHLORIDE
  18. AMLODIPINE [Concomitant]
     Active Substance: AMLODIPINE BESYLATE

REACTIONS (2)
  - Wrong technique in product usage process [Unknown]
  - Injection site pain [Unknown]
